FAERS Safety Report 21918090 (Version 1)
Quarter: 2023Q1

REPORT INFORMATION
  Report Type: Report from Study
  Country: US (occurrence: None)
  Receive Date: 20230127
  Receipt Date: 20230127
  Transmission Date: 20230417
  Serious: Yes (Death, Hospitalization)
  Sender: FDA-Public Use
  Company Number: US-ROCHE-3272226

PATIENT
  Sex: Male
  Weight: 78.9 kg

DRUGS (3)
  1. ATEZOLIZUMAB [Suspect]
     Active Substance: ATEZOLIZUMAB
     Indication: Bladder transitional cell carcinoma
     Route: 042
     Dates: start: 20220321, end: 20220613
  2. CISPLATIN [Suspect]
     Active Substance: CISPLATIN
     Indication: Bladder transitional cell carcinoma
     Route: 042
     Dates: start: 20220321, end: 20220425
  3. MITOMYCIN C [Suspect]
     Active Substance: MITOMYCIN
     Indication: Bladder transitional cell carcinoma
     Route: 042
     Dates: start: 20220321

REACTIONS (2)
  - Pleural effusion [Not Recovered/Not Resolved]
  - Death [Fatal]

NARRATIVE: CASE EVENT DATE: 20220707
